FAERS Safety Report 14943827 (Version 2)
Quarter: 2018Q2

REPORT INFORMATION
  Report Type: Report from Study
  Country: None (occurrence: CH)
  Receive Date: 20180528
  Receipt Date: 20180604
  Transmission Date: 20180711
  Serious: Yes (Hospitalization, Other)
  Sender: FDA-Public Use
  Company Number: CH-ABBVIE-18K-151-2369483-00

PATIENT
  Sex: Male

DRUGS (3)
  1. DUODOPA [Suspect]
     Active Substance: CARBIDOPA\LEVODOPA
     Dosage: MD: 2ML; CONTINUOUS RATE DAY 4ML/H; CONTINUOUS RATE NIGHT 2ML/H; ED: 2.4ML?24H THERAPY
     Route: 050
     Dates: start: 20170630, end: 20171018
  2. DUODOPA [Suspect]
     Active Substance: CARBIDOPA\LEVODOPA
     Indication: PARKINSON^S DISEASE
     Route: 050
     Dates: start: 20130812, end: 20170630
  3. DUODOPA [Suspect]
     Active Substance: CARBIDOPA\LEVODOPA
     Dosage: MD: 3ML; CONTINUOUS RATE DAY 3.8ML/H; CONTINUOUS RATE NIGHT 2ML/H; ED: 2.4ML?24H THERAPY
     Route: 050
     Dates: start: 20171018

REACTIONS (4)
  - General physical health deterioration [Unknown]
  - Confusional state [Unknown]
  - Hallucination [Unknown]
  - Brain neoplasm [Unknown]
